FAERS Safety Report 21199172 (Version 1)
Quarter: 2022Q3

REPORT INFORMATION
  Report Type: Spontaneous
  Country: NL (occurrence: NL)
  Receive Date: 20220811
  Receipt Date: 20220811
  Transmission Date: 20221026
  Serious: Yes (Other)
  Sender: FDA-Public Use
  Company Number: None

PATIENT
  Sex: Male
  Weight: 98 kg

DRUGS (2)
  1. DOXYCYCLINE [Suspect]
     Active Substance: DOXYCYCLINE
     Indication: Increased bronchial secretion
     Dosage: 100 MG (MILLIGRAM),BRAND NAME NOT SPECIFIED, UNIT DOSE AND STRENGTH :  100 MG, THERAPY END DATE : A
     Route: 065
     Dates: start: 20220721
  2. DOXYCYCLINE [Suspect]
     Active Substance: DOXYCYCLINE
     Indication: Dyspnoea

REACTIONS (2)
  - Bradycardia [Not Recovered/Not Resolved]
  - Palpitations [Not Recovered/Not Resolved]
